FAERS Safety Report 20590537 (Version 3)
Quarter: 2022Q4

REPORT INFORMATION
  Report Type: Report from Study
  Country: US (occurrence: US)
  Receive Date: 20220314
  Receipt Date: 20221219
  Transmission Date: 20230113
  Serious: Yes (Hospitalization)
  Sender: FDA-Public Use
  Company Number: US-PFIZER INC-202200390765

PATIENT
  Age: 59 Year
  Sex: Male
  Weight: 124 kg

DRUGS (39)
  1. METOPROLOL TARTRATE [Suspect]
     Active Substance: METOPROLOL TARTRATE
     Indication: Atrial fibrillation
  2. FLUTICASONE PROPIONATE [Concomitant]
     Active Substance: FLUTICASONE PROPIONATE
     Indication: Seasonal allergy
     Dosage: 50 MG, 1X/DAY, SPRAY NOT INHALATION
     Route: 045
     Dates: start: 201705
  3. LUNESTA [Concomitant]
     Active Substance: ESZOPICLONE
     Indication: Insomnia
     Dosage: 3 MG, 1X/DAY
     Route: 048
     Dates: start: 201705
  4. XARELTO [Concomitant]
     Active Substance: RIVAROXABAN
     Indication: Atrial fibrillation
     Dosage: 20 MG, 1X/DAY
     Route: 048
     Dates: start: 201705
  5. XARELTO [Concomitant]
     Active Substance: RIVAROXABAN
     Dosage: 30 MG, 2X/DAY
     Route: 048
     Dates: start: 20200619
  6. LEXAPRO [Concomitant]
     Active Substance: ESCITALOPRAM OXALATE
     Indication: Depression
     Dosage: 10 MG, 1X/DAY
     Route: 048
     Dates: start: 201705
  7. GLUCOPHAGE [Concomitant]
     Active Substance: METFORMIN HYDROCHLORIDE
     Indication: Type 2 diabetes mellitus
     Dosage: 2000 MG, 2X/DAY
     Route: 048
     Dates: start: 201705
  8. LIPITOR [Concomitant]
     Active Substance: ATORVASTATIN CALCIUM
     Indication: Hyperlipidaemia
     Dosage: 40 MG, 1X/DAY
     Route: 048
     Dates: start: 20171006
  9. ZOMETA [Concomitant]
     Active Substance: ZOLEDRONIC ACID
     Indication: Back pain
     Dosage: 4 MG, MONTHLY
     Route: 042
     Dates: start: 20181022
  10. ROXICODONE [Concomitant]
     Active Substance: OXYCODONE HYDROCHLORIDE
     Indication: Bone pain
     Dosage: UNK, AS NEEDED
     Route: 048
     Dates: start: 201811
  11. SINEMET [Concomitant]
     Active Substance: CARBIDOPA\LEVODOPA
     Indication: Restless legs syndrome
     Dosage: [CARBIDOPA MONOHYDRATE 25 MG]/ [LEVODOPA 100 MG], AS NEEDED
     Route: 048
     Dates: start: 201905
  12. ACYCLOVIR [Concomitant]
     Active Substance: ACYCLOVIR
     Indication: Infection prophylaxis
     Dosage: 800 MG, 2X/DAY
     Route: 048
     Dates: start: 20191230
  13. REMERON [Concomitant]
     Active Substance: MIRTAZAPINE
     Indication: Depression
     Dosage: 15 MG, 1X/DAY
     Route: 048
     Dates: start: 20200507
  14. MIRAPEX [Concomitant]
     Active Substance: PRAMIPEXOLE DIHYDROCHLORIDE
     Indication: Restless legs syndrome
     Dosage: 2 MG, 2X/DAY
     Route: 048
     Dates: start: 20200507
  15. COMPAZINE [Concomitant]
     Active Substance: PROCHLORPERAZINE MALEATE
     Indication: Vomiting
     Dosage: 10 MG, AS NEEDED
     Route: 048
     Dates: start: 20200507
  16. COMPAZINE [Concomitant]
     Active Substance: PROCHLORPERAZINE MALEATE
     Indication: Nausea
  17. BUMEX [Concomitant]
     Active Substance: BUMETANIDE
     Indication: Atrial fibrillation
     Dosage: 1 MG, 1X/DAY
     Route: 048
     Dates: start: 20200509
  18. ACETAMINOPHEN\ORPHENADRINE CITRATE [Concomitant]
     Active Substance: ACETAMINOPHEN\ORPHENADRINE CITRATE
     Indication: Bone pain
     Dosage: 50 UG, 1 IN 72 HR
     Route: 048
     Dates: start: 202006
  19. NORVASC [Concomitant]
     Active Substance: AMLODIPINE BESYLATE
     Indication: Hypertension
     Dosage: 5 MG, 1X/DAY
     Route: 048
     Dates: start: 201710, end: 20200615
  20. LOPRESSOR [Concomitant]
     Active Substance: METOPROLOL TARTRATE
     Indication: Atrial fibrillation
     Dosage: 200 MG, 2X/DAY
     Route: 048
     Dates: start: 20200508, end: 20200614
  21. AMIODARONE [Concomitant]
     Active Substance: AMIODARONE
     Indication: Atrial flutter
     Dosage: 150 MG, 1X/DAY, IN DEXTROSE
     Route: 042
     Dates: start: 20200612, end: 20200612
  22. AMIODARONE [Concomitant]
     Active Substance: AMIODARONE
     Dosage: 33.3 MG, ONCE, IN DEXTROSE
     Route: 042
     Dates: start: 20200612, end: 20200612
  23. AMIODARONE [Concomitant]
     Active Substance: AMIODARONE
     Dosage: 16.7 MG, CONTINUOUS, IN DEXTROSE
     Route: 042
     Dates: start: 20200612, end: 20200613
  24. ACETAMINOPHEN [Concomitant]
     Active Substance: ACETAMINOPHEN
     Indication: Bone pain
     Dosage: 1000 MG, AS NEEDED
     Route: 048
     Dates: start: 20200612, end: 20200612
  25. LASIX [Concomitant]
     Active Substance: FUROSEMIDE
     Indication: Oedema peripheral
     Dosage: ONCE
     Route: 042
     Dates: start: 20200612, end: 20200612
  26. SODIUM CHLORIDE [Concomitant]
     Active Substance: SODIUM CHLORIDE
     Indication: Central venous catheterisation
     Dosage: 3 ML, 2X/DAY
     Route: 042
     Dates: start: 20200612, end: 20200614
  27. PACERONE [Concomitant]
     Active Substance: AMIODARONE HYDROCHLORIDE
     Indication: Atrial flutter
     Dosage: 800 MG, 2X/DAY
     Route: 048
     Dates: start: 20200613, end: 20200615
  28. PACERONE [Concomitant]
     Active Substance: AMIODARONE HYDROCHLORIDE
     Indication: Atrial fibrillation
     Dosage: 800 MG, 2X/DAY
     Route: 048
     Dates: start: 20200618
  29. POTASSIUM CHLORIDE [Concomitant]
     Active Substance: POTASSIUM CHLORIDE
     Indication: Hypokalaemia
     Dosage: UNK, ONCE
     Route: 048
     Dates: start: 20200613, end: 20200613
  30. TOPROL XL [Concomitant]
     Active Substance: METOPROLOL SUCCINATE
     Indication: Atrial fibrillation
     Dosage: 60 MG, 1X/DAY
     Route: 048
     Dates: start: 20200614
  31. VITAMIN C [Concomitant]
     Active Substance: ASCORBIC ACID
     Indication: Supplementation therapy
     Dosage: 500 MG, 1 IN 2 D
     Route: 048
     Dates: start: 20200614, end: 20200614
  32. FERROUS SULFATE [Concomitant]
     Active Substance: FERROUS SULFATE
     Indication: Iron deficiency
     Dosage: 65 MG, 1 IN 2 D
     Route: 048
     Dates: start: 20200614, end: 20200614
  33. FERROUS SULFATE [Concomitant]
     Active Substance: FERROUS SULFATE
     Dosage: 65 MG, 1 IN 2 D
     Route: 048
     Dates: start: 20200619
  34. FOLIC ACID [Concomitant]
     Active Substance: FOLIC ACID
     Indication: Supplementation therapy
     Dosage: 1 MG, 1X/DAY
     Route: 048
     Dates: start: 20200614, end: 20200614
  35. LISINOPRIL [Concomitant]
     Active Substance: LISINOPRIL
     Indication: Cardiac failure congestive
     Dosage: 2.5 MG, 1X/DAY
     Route: 048
     Dates: start: 20200614
  36. ONDANSETRON HCL [Concomitant]
     Active Substance: ONDANSETRON HYDROCHLORIDE
     Indication: Nausea
     Dosage: 4 MG, 1X/DAY
     Route: 042
     Dates: start: 20200614, end: 20200614
  37. FARXIGA [Concomitant]
     Active Substance: DAPAGLIFLOZIN PROPANEDIOL
     Indication: Type 2 diabetes mellitus
     Dosage: 2.5 MG, 1X/DAY
     Route: 048
     Dates: start: 20200615
  38. NOVOLOG [Concomitant]
     Active Substance: INSULIN ASPART
     Indication: Type 2 diabetes mellitus
     Dosage: 6 IU, 3X/DAY
     Route: 058
     Dates: start: 20200618, end: 20200619
  39. COLACE [Concomitant]
     Active Substance: DOCUSATE SODIUM
     Indication: Constipation
     Dosage: 200 NG, 2X/DAY
     Route: 048
     Dates: start: 20200618, end: 20200618

REACTIONS (1)
  - Fall [Unknown]

NARRATIVE: CASE EVENT DATE: 20200625
